FAERS Safety Report 6741333-3 (Version None)
Quarter: 2010Q2

REPORT INFORMATION
  Report Type: 
  Country: None (occurrence: None)
  Receive Date: 20100526
  Receipt Date: 20100525
  Transmission Date: 20101027
  Serious: Yes (Death, Hospitalization)
  Sender: FDA-Public Use
  Company Number: GB-PFIZER INC-2008071958

PATIENT
  Age: 79 Year
  Sex: Male
  Weight: 79 kg

DRUGS (7)
  1. SUNITINIB MALATE [Suspect]
     Indication: RENAL CELL CARCINOMA
     Dosage: 25 MG, 1X/DAY
     Route: 048
     Dates: start: 20060323, end: 20080801
  2. METFORMIN HYDROCHLORIDE [Concomitant]
     Indication: DIABETES MELLITUS
     Dosage: UNK
  3. LANSOPRAZOLE [Concomitant]
     Dosage: UNK
     Route: 048
     Dates: end: 20080825
  4. AMLODIPINE [Concomitant]
     Dosage: UNK
     Route: 048
     Dates: end: 20080823
  5. ATORVASTATIN [Concomitant]
     Dosage: UNK
     Route: 048
     Dates: end: 20080824
  6. PERINDOPRIL [Concomitant]
     Dosage: UNK
     Route: 048
     Dates: end: 20080825
  7. GLIBENCLAMIDE [Concomitant]
     Dosage: UNK
     Route: 048
     Dates: end: 20080823

REACTIONS (1)
  - MYOCARDIAL INFARCTION [None]
